FAERS Safety Report 9418787 (Version 1)
Quarter: 2013Q3

REPORT INFORMATION
  Report Type: Spontaneous
  Country: US (occurrence: US)
  Receive Date: 20130725
  Receipt Date: 20130725
  Transmission Date: 20140515
  Serious: No
  Sender: FDA-Public Use
  Company Number: US-PFIZER INC-2013216204

PATIENT
  Age: 58 Year
  Sex: Female
  Weight: 57.14 kg

DRUGS (2)
  1. LYRICA [Suspect]
     Indication: HERPES ZOSTER
     Dosage: 75 MG, 3X/DAY
     Dates: start: 20130715
  2. AMITRIPTYLINE [Concomitant]
     Indication: INSOMNIA
     Dosage: 20 MG, 1X/DAY

REACTIONS (1)
  - Drug ineffective [Unknown]
